FAERS Safety Report 13778912 (Version 1)
Quarter: 2017Q3

REPORT INFORMATION
  Report Type: Spontaneous
  Country: US (occurrence: US)
  Receive Date: 20170721
  Receipt Date: 20170721
  Transmission Date: 20171127
  Serious: No
  Sender: FDA-Public Use
  Company Number: US-PFIZER INC-2017316519

PATIENT
  Sex: Female
  Weight: 63.5 kg

DRUGS (3)
  1. PERCOCET [Suspect]
     Active Substance: ACETAMINOPHEN\OXYCODONE HYDROCHLORIDE
     Indication: PAIN
  2. PERCODAN [Suspect]
     Active Substance: ASPIRIN\OXYCODONE HYDROCHLORIDE
     Indication: PAIN
  3. NEURONTIN [Suspect]
     Active Substance: GABAPENTIN
     Indication: PAIN

REACTIONS (3)
  - Drug ineffective for unapproved indication [Unknown]
  - Intentional product use issue [Unknown]
  - Overdose [Unknown]
